FAERS Safety Report 25995838 (Version 1)
Quarter: 2025Q4

REPORT INFORMATION
  Report Type: Report from Study
  Country: US (occurrence: US)
  Receive Date: 20251104
  Receipt Date: 20251104
  Transmission Date: 20260118
  Serious: No
  Sender: GRIFOLS
  Company Number: US-IGSA-BIG0039071

PATIENT
  Age: 67 Year
  Sex: Male

DRUGS (2)
  1. GAMUNEX-C [Suspect]
     Active Substance: HUMAN IMMUNOGLOBULIN G
     Indication: Hypogammaglobulinaemia
     Dosage: 50 MILLIGRAM, Q.4WK.
     Route: 042
     Dates: start: 20251017
  2. GAMUNEX-C [Suspect]
     Active Substance: HUMAN IMMUNOGLOBULIN G
     Dosage: 50 MILLIGRAM, Q.4WK.
     Route: 042
     Dates: start: 201909

REACTIONS (1)
  - Urticaria [Unknown]

NARRATIVE: CASE EVENT DATE: 20251017
